FAERS Safety Report 9915636 (Version 2)
Quarter: 2014Q1

REPORT INFORMATION
  Report Type: Report from Study
  Country: FR (occurrence: FR)
  Receive Date: 20140221
  Receipt Date: 20140228
  Transmission Date: 20141002
  Serious: Yes (Life-Threatening, Hospitalization)
  Sender: FDA-Public Use
  Company Number: FR-ROCHE-1351818

PATIENT
  Age: 86 Year
  Sex: Female
  Weight: 64 kg

DRUGS (11)
  1. VISMODEGIB [Suspect]
     Indication: BASAL CELL CARCINOMA
     Dosage: DATE OF LAST DOSE PRIOR TO SAE: 11/FEB/2014
     Route: 048
     Dates: start: 20130702
  2. KARDEGIC [Concomitant]
     Indication: CARDIOVASCULAR EVENT PROPHYLAXIS
     Route: 065
  3. LASILIX [Concomitant]
     Indication: HYPERTENSION
     Route: 065
  4. LIPANTHYL [Concomitant]
     Indication: HYPERCHOLESTEROLAEMIA
     Route: 065
  5. HEMIGOXINE [Concomitant]
     Indication: CARDIAC FAILURE
     Route: 065
  6. LANSOPRAZOLE [Concomitant]
     Indication: GASTRITIS PROPHYLAXIS
     Route: 065
  7. IMPORTAL [Concomitant]
     Indication: CONSTIPATION PROPHYLAXIS
     Route: 065
  8. FOSAVANCE [Concomitant]
     Indication: OSTEOPOROSIS
     Route: 065
  9. THYROXINE [Concomitant]
     Indication: HYPOTHYROIDISM
     Route: 065
  10. VENTOLINE [Concomitant]
     Indication: ASTHMA
  11. BECOTIDE [Concomitant]
     Indication: ASTHMA

REACTIONS (1)
  - Pancreatitis [Not Recovered/Not Resolved]
